FAERS Safety Report 6273471-6 (Version None)
Quarter: 2009Q3

REPORT INFORMATION
  Report Type: 
  Country: None (occurrence: None)
  Receive Date: 20090720
  Receipt Date: 20090716
  Transmission Date: 20100115
  Serious: Yes (Death, Other)
  Sender: FDA-Public Use
  Company Number: PHHY2009JP27613

PATIENT
  Sex: Female

DRUGS (7)
  1. DIOVAN [Suspect]
     Indication: HYPERTENSION
     Dosage: 80 MG, QD
     Route: 048
     Dates: start: 20080702
  2. TANATRIL [Concomitant]
     Indication: HYPERTENSION
     Dosage: 2.5 MG
     Route: 048
     Dates: start: 20080702
  3. ETHYL ICOSAPENTATE [Concomitant]
     Dosage: 1800 MG
     Route: 048
     Dates: start: 20080702
  4. GASPORT [Concomitant]
     Dosage: 20 MG
     Route: 048
     Dates: start: 20080702
  5. PAXIL [Concomitant]
     Dosage: 40 MG
     Route: 048
     Dates: start: 20080702
  6. GASMOTIN [Concomitant]
     Dosage: 5 MG
     Route: 048
     Dates: start: 20080702
  7. MUCOTRON [Concomitant]
     Dosage: 1000 MG
     Route: 048
     Dates: start: 20080702

REACTIONS (4)
  - CARDIAC FAILURE [None]
  - HYPOTENSION [None]
  - PNEUMONIA [None]
  - PYREXIA [None]
